FAERS Safety Report 5653628-5 (Version None)
Quarter: 2008Q1

REPORT INFORMATION
  Report Type: 
  Country: None (occurrence: None)
  Receive Date: 20080131
  Receipt Date: 20071005
  Transmission Date: 20080703
  Serious: No
  Sender: FDA-Public Use
  Company Number: US200710002281

PATIENT
  Age: 75 Year
  Sex: Male
  Weight: 99.8 kg

DRUGS (6)
  1. BYETTA [Suspect]
     Indication: TYPE 2 DIABETES MELLITUS
     Dosage: SUBCUTANEOUS ; 5 UG, 2/D, SUBCUTANEOUS
     Route: 058
     Dates: start: 20071005
  2. METFORMIN HCL [Concomitant]
  3. ACTOS /USA/ (PIOGLITAZONE HYDROCHLORIDE) [Concomitant]
  4. AMARYL [Concomitant]
  5. DRUG USED IN DIABETES [Concomitant]
  6. PREDNISONE TAB [Concomitant]

REACTIONS (1)
  - HYPERGLYCAEMIA [None]
